FAERS Safety Report 7353334-5 (Version None)
Quarter: 2011Q1

REPORT INFORMATION
  Report Type: 
  Country: None (occurrence: None)
  Receive Date: 20110310
  Receipt Date: 20110310
  Transmission Date: 20110831
  Serious: Yes (Other)
  Sender: FDA-Public Use
  Company Number: None

PATIENT
  Age: 81 Year
  Sex: Female
  Weight: 52.1637 kg

DRUGS (1)
  1. CIPROFLOXACIN [Suspect]
     Indication: KIDNEY INFECTION
     Dosage: 500MG 10 DAYS
     Dates: start: 20110115, end: 20110125

REACTIONS (3)
  - TENDONITIS [None]
  - JOINT SWELLING [None]
  - OEDEMA PERIPHERAL [None]
